FAERS Safety Report 7932336-1 (Version None)
Quarter: 2011Q4

REPORT INFORMATION
  Report Type: 
  Country: None (occurrence: None)
  Receive Date: 20111121
  Receipt Date: 20111108
  Transmission Date: 20120403
  Serious: Yes (Hospitalization)
  Sender: FDA-Public Use
  Company Number: US-ELI_LILLY_AND_COMPANY-US201007000406

PATIENT
  Sex: Female

DRUGS (3)
  1. FORTEO [Suspect]
     Dosage: 20 UG, QD
  2. FORTEO [Suspect]
     Indication: OSTEOPOROSIS
     Dosage: 20 UG, QD
     Route: 065
     Dates: start: 20100501
  3. ARIMIDEX [Concomitant]

REACTIONS (4)
  - INJECTION SITE HAEMORRHAGE [None]
  - ATRIAL FIBRILLATION [None]
  - INJECTION SITE PAIN [None]
  - INJECTION SITE HAEMATOMA [None]
